FAERS Safety Report 16801779 (Version 2)
Quarter: 2019Q3

REPORT INFORMATION
  Report Type: Spontaneous
  Country: DE (occurrence: DE)
  Receive Date: 20190912
  Receipt Date: 20190912
  Transmission Date: 20191005
  Serious: Yes (Other)
  Sender: FDA-Public Use
  Company Number: PHHY2019DE210544

PATIENT
  Sex: Female
  Weight: 78 kg

DRUGS (2)
  1. CIPROFLOXACIN. [Suspect]
     Active Substance: CIPROFLOXACIN
     Indication: SINUSITIS
     Dosage: UNK
     Route: 065
     Dates: start: 2018, end: 2018
  2. LEVOFLOXACIN - 1 A PHARMA [Suspect]
     Active Substance: LEVOFLOXACIN
     Indication: PRODUCT USED FOR UNKNOWN INDICATION
     Dosage: 500 MG, UNK
     Route: 065

REACTIONS (8)
  - Fatigue [Unknown]
  - Dizziness [Unknown]
  - Disturbance in attention [Unknown]
  - Tachycardia [Unknown]
  - Somnolence [Unknown]
  - Tendon pain [Unknown]
  - Anxiety [Unknown]
  - Myalgia [Unknown]
